FAERS Safety Report 6976769-9 (Version None)
Quarter: 2010Q3

REPORT INFORMATION
  Report Type: 
  Country: None (occurrence: None)
  Receive Date: 20100910
  Receipt Date: 20100902
  Transmission Date: 20110219
  Serious: Yes (Hospitalization)
  Sender: FDA-Public Use
  Company Number: PHHO2010FR13200

PATIENT
  Sex: Female
  Weight: 75 kg

DRUGS (5)
  1. CGS 20267 T30748+TAB [Suspect]
     Indication: BREAST CANCER
     Dosage: 2.5 MG/DAY
     Route: 048
     Dates: start: 20091210
  2. RADIOTHERAPY [Suspect]
     Indication: BREAST CANCER
  3. EXFORGE [Concomitant]
     Indication: HYPERTENSION
     Dosage: UNK
  4. CELECTOL [Concomitant]
     Indication: HYPERTENSION
  5. TAHOR [Concomitant]
     Indication: HYPERCHOLESTEROLAEMIA

REACTIONS (3)
  - ATRIOVENTRICULAR BLOCK [None]
  - CARDIAC PACEMAKER INSERTION [None]
  - CONDUCTION DISORDER [None]
